FAERS Safety Report 7069894-8 (Version None)
Quarter: 2010Q4

REPORT INFORMATION
  Report Type: 
  Country: None (occurrence: None)
  Receive Date: 20101028
  Receipt Date: 20100707
  Transmission Date: 20110411
  Serious: Yes (Other)
  Sender: FDA-Public Use
  Company Number: US-WYE-H16041910

PATIENT
  Sex: Male

DRUGS (1)
  1. EFFEXOR [Suspect]
     Dates: start: 20091201

REACTIONS (1)
  - CONVULSION [None]
